FAERS Safety Report 7765717-X (Version None)
Quarter: 2011Q3

REPORT INFORMATION
  Report Type: 
  Country: None (occurrence: None)
  Receive Date: 20110921
  Receipt Date: 20110913
  Transmission Date: 20111222
  Serious: Yes (Other)
  Sender: FDA-Public Use
  Company Number: PHHY2011GB81325

PATIENT
  Age: 70 Year
  Sex: Female

DRUGS (1)
  1. ATENOLOL [Suspect]
     Dosage: 2.5 MG, BID
     Route: 048

REACTIONS (1)
  - MALAISE [None]
